FAERS Safety Report 10229068 (Version 2)
Quarter: 2014Q3

REPORT INFORMATION
  Report Type: Spontaneous
  Country: US (occurrence: US)
  Receive Date: 20140610
  Receipt Date: 20140904
  Transmission Date: 20150326
  Serious: Yes (Hospitalization, Other)
  Sender: FDA-Public Use
  Company Number: US-GILEAD-2014-0104627

PATIENT
  Age: 75 Year
  Sex: Female

DRUGS (13)
  1. LETAIRIS [Suspect]
     Active Substance: AMBRISENTAN
     Indication: PULMONARY ARTERIAL HYPERTENSION
     Dosage: 10 MG, QD
     Route: 065
     Dates: start: 20120120
  2. AZOPT [Concomitant]
     Active Substance: BRINZOLAMIDE
  3. DEXILANT [Concomitant]
     Active Substance: DEXLANSOPRAZOLE
  4. KLOR-CON [Concomitant]
     Active Substance: POTASSIUM CHLORIDE
  5. LETAIRIS [Suspect]
     Active Substance: AMBRISENTAN
     Indication: SARCOIDOSIS
  6. PREDNISOLONE. [Concomitant]
     Active Substance: PREDNISOLONE
  7. BENICAR [Concomitant]
     Active Substance: OLMESARTAN MEDOXOMIL
  8. VELETRI [Concomitant]
     Active Substance: EPOPROSTENOL
  9. LASIX [Concomitant]
     Active Substance: FUROSEMIDE
  10. METOLAZONE. [Concomitant]
     Active Substance: METOLAZONE
  11. MAG-OX [Concomitant]
  12. RANITIDINE [Concomitant]
     Active Substance: RANITIDINE\RANITIDINE HYDROCHLORIDE
  13. ADCIRCA [Concomitant]
     Active Substance: TADALAFIL

REACTIONS (1)
  - Abdominal distension [Unknown]
